FAERS Safety Report 25608900 (Version 1)
Quarter: 2025Q3

REPORT INFORMATION
  Report Type: Spontaneous
  Country: CA (occurrence: CA)
  Receive Date: 20250726
  Receipt Date: 20250726
  Transmission Date: 20251021
  Serious: Yes (Death, Congenital Anomaly, Other)
  Sender: AMGEN
  Company Number: CA-AMGEN-CANSP2025146653

PATIENT

DRUGS (70)
  1. ENBREL [Suspect]
     Active Substance: ETANERCEPT
     Indication: Exposure during pregnancy
     Route: 064
  2. OTEZLA [Suspect]
     Active Substance: APREMILAST
     Indication: Exposure during pregnancy
     Route: 064
  3. RITUXIMAB [Suspect]
     Active Substance: RITUXIMAB
     Indication: Exposure during pregnancy
     Route: 064
  4. ACETAMINOPHEN [Suspect]
     Active Substance: ACETAMINOPHEN
     Indication: Exposure during pregnancy
     Route: 064
  5. ACTEMRA [Suspect]
     Active Substance: TOCILIZUMAB
     Indication: Exposure during pregnancy
     Route: 064
  6. ALENDRONATE SODIUM [Suspect]
     Active Substance: ALENDRONATE SODIUM
     Indication: Exposure during pregnancy
     Route: 064
  7. PREDNISONE [Suspect]
     Active Substance: PREDNISONE
     Indication: Exposure during pregnancy
     Route: 064
  8. ARAVA [Suspect]
     Active Substance: LEFLUNOMIDE
     Indication: Exposure during pregnancy
     Route: 064
  9. AZATHIOPRINE [Suspect]
     Active Substance: AZATHIOPRINE
     Indication: Exposure during pregnancy
     Route: 064
  10. CAFFEINE CITRATE [Concomitant]
     Active Substance: CAFFEINE CITRATE
     Indication: Exposure during pregnancy
     Route: 064
  11. CALCIUM CARBONATE [Suspect]
     Active Substance: CALCIUM CARBONATE
     Indication: Exposure during pregnancy
     Route: 064
  12. CALCIUM GLUBIONATE [Suspect]
     Active Substance: CALCIUM GLUBIONATE
     Indication: Exposure during pregnancy
     Route: 064
  13. CALCIUM GLUCONATE [Concomitant]
     Active Substance: CALCIUM GLUCONATE
     Indication: Exposure during pregnancy
     Route: 064
  14. CERTOLIZUMAB PEGOL [Suspect]
     Active Substance: CERTOLIZUMAB PEGOL
     Indication: Exposure during pregnancy
     Route: 064
  15. CETIRIZINE [Suspect]
     Active Substance: CETIRIZINE HYDROCHLORIDE
     Indication: Exposure during pregnancy
     Route: 064
  16. CETIRIZINE HYDROCHLORIDE [Suspect]
     Active Substance: CETIRIZINE HYDROCHLORIDE
     Indication: Exposure during pregnancy
     Route: 064
  17. CIMZIA [Suspect]
     Active Substance: CERTOLIZUMAB PEGOL
     Indication: Exposure during pregnancy
     Route: 064
  18. CODEINE [Concomitant]
     Active Substance: CODEINE
     Indication: Exposure during pregnancy
     Route: 064
  19. CORTISONE ACETATE [Suspect]
     Active Substance: CORTISONE ACETATE
     Indication: Exposure during pregnancy
     Route: 064
  20. COSENTYX [Suspect]
     Active Substance: SECUKINUMAB
     Indication: Exposure during pregnancy
     Route: 064
  21. DESOGESTREL AND ETHINYL ESTRADIOL [Concomitant]
     Active Substance: DESOGESTREL\ETHINYL ESTRADIOL
     Indication: Exposure during pregnancy
     Route: 064
  22. DESOXIMETASONE [Suspect]
     Active Substance: DESOXIMETASONE
     Indication: Exposure during pregnancy
     Route: 064
  23. DEXAMETHASONE [Suspect]
     Active Substance: DEXAMETHASONE
     Indication: Exposure during pregnancy
     Route: 064
  24. DICLOFENAC [Suspect]
     Active Substance: DICLOFENAC
     Indication: Exposure during pregnancy
     Route: 064
  25. DICLOFENAC POTASSIUM [Concomitant]
     Active Substance: DICLOFENAC POTASSIUM
     Indication: Exposure during pregnancy
     Route: 064
  26. DIPHENHYDRAMINE [Suspect]
     Active Substance: DIPHENHYDRAMINE
     Indication: Exposure during pregnancy
     Route: 064
  27. ERELZI [Suspect]
     Active Substance: ETANERCEPT-SZZS
     Indication: Exposure during pregnancy
     Route: 064
  28. FLUMETHASONE PIVALATE [Suspect]
     Active Substance: FLUMETHASONE PIVALATE
     Indication: Exposure during pregnancy
     Route: 064
  29. FOLIC ACID [Suspect]
     Active Substance: FOLIC ACID
     Indication: Exposure during pregnancy
     Route: 064
  30. FOSAMAX [Suspect]
     Active Substance: ALENDRONATE SODIUM
     Indication: Exposure during pregnancy
     Route: 064
  31. GOLD [Suspect]
     Active Substance: GOLD
     Indication: Exposure during pregnancy
     Route: 064
  32. GOLIMUMAB [Suspect]
     Active Substance: GOLIMUMAB
     Indication: Exposure during pregnancy
     Route: 064
  33. HUMIRA [Suspect]
     Active Substance: ADALIMUMAB
     Indication: Exposure during pregnancy
     Route: 064
  34. HYDROCORTISONE [Suspect]
     Active Substance: HYDROCORTISONE
     Indication: Exposure during pregnancy
     Route: 064
  35. HYDROXYCHLOROQUINE [Suspect]
     Active Substance: HYDROXYCHLOROQUINE
     Indication: Exposure during pregnancy
     Route: 064
  36. HYDROXYCHLOROQUINE SULFATE [Suspect]
     Active Substance: HYDROXYCHLOROQUINE SULFATE
     Indication: Exposure during pregnancy
     Route: 064
  37. HYRIMOZ [Suspect]
     Active Substance: ADALIMUMAB-ADAZ
     Indication: Exposure during pregnancy
     Route: 064
  38. IBUPROFEN [Concomitant]
     Active Substance: IBUPROFEN
     Indication: Exposure during pregnancy
     Route: 064
  39. LISINOPRIL [Concomitant]
     Active Substance: LISINOPRIL
     Indication: Exposure during pregnancy
     Route: 064
  40. METHOTREXATE [Suspect]
     Active Substance: METHOTREXATE
     Indication: Exposure during pregnancy
     Route: 064
  41. METHYLPREDNISOLONE [Suspect]
     Active Substance: METHYLPREDNISOLONE
     Indication: Exposure during pregnancy
     Route: 064
  42. MYOCHRYSINE [Suspect]
     Active Substance: GOLD SODIUM THIOMALATE
     Indication: Exposure during pregnancy
     Route: 064
  43. NAPROXEN [Concomitant]
     Active Substance: NAPROXEN
     Indication: Exposure during pregnancy
     Route: 064
  44. ORENCIA [Suspect]
     Active Substance: ABATACEPT
     Indication: Exposure during pregnancy
     Route: 064
  45. PANTOPRAZOLE [Concomitant]
     Active Substance: PANTOPRAZOLE
     Indication: Exposure during pregnancy
     Route: 064
  46. PERIOGARD [Suspect]
     Active Substance: CHLORHEXIDINE GLUCONATE
     Indication: Exposure during pregnancy
     Route: 064
  47. PHTHALYLSULFATHIAZOLE [Suspect]
     Active Substance: PHTHALYLSULFATHIAZOLE
     Indication: Exposure during pregnancy
     Route: 064
  48. PREDNISONE [Suspect]
     Active Substance: PREDNISONE
     Indication: Exposure during pregnancy
     Route: 064
  49. PSEUDOEPHEDRINE HYDROCHLORIDE [Suspect]
     Active Substance: PSEUDOEPHEDRINE HYDROCHLORIDE
     Indication: Exposure during pregnancy
     Route: 064
  50. QUETIAPINE FUMARATE [Concomitant]
     Active Substance: QUETIAPINE FUMARATE
     Indication: Exposure during pregnancy
     Route: 064
  51. RAMIPRIL [Concomitant]
     Active Substance: RAMIPRIL
     Indication: Exposure during pregnancy
     Route: 064
  52. CETIRIZINE HYDROCHLORIDE\PSEUDOEPHEDRINE HYDROCHLORIDE [Suspect]
     Active Substance: CETIRIZINE HYDROCHLORIDE\PSEUDOEPHEDRINE HYDROCHLORIDE
     Indication: Exposure during pregnancy
     Route: 064
  53. REMICADE [Suspect]
     Active Substance: INFLIXIMAB
     Indication: Exposure during pregnancy
     Route: 064
  54. SULFASALAZINE [Suspect]
     Active Substance: SULFASALAZINE
     Indication: Exposure during pregnancy
     Route: 064
  55. DICLOFENAC SODIUM [Suspect]
     Active Substance: DICLOFENAC SODIUM
     Indication: Exposure during pregnancy
     Route: 064
  56. HYDROCORTISONE [Suspect]
     Active Substance: HYDROCORTISONE
     Indication: Exposure during pregnancy
     Route: 064
  57. LEFLUNOMIDE [Suspect]
     Active Substance: LEFLUNOMIDE
     Indication: Exposure during pregnancy
     Route: 064
  58. SIMPONI [Suspect]
     Active Substance: GOLIMUMAB
     Indication: Exposure during pregnancy
     Route: 064
  59. SIRUKUMAB [Suspect]
     Active Substance: SIRUKUMAB
     Indication: Exposure during pregnancy
     Route: 064
  60. GOLD SODIUM THIOMALATE [Suspect]
     Active Substance: GOLD SODIUM THIOMALATE
     Indication: Exposure during pregnancy
     Route: 064
  61. SOLU-MEDROL [Suspect]
     Active Substance: METHYLPREDNISOLONE SODIUM SUCCINATE
     Indication: Exposure during pregnancy
     Route: 064
  62. STELARA [Suspect]
     Active Substance: USTEKINUMAB
     Indication: Exposure during pregnancy
     Route: 064
  63. SULFAMETHOXAZOLE AND TRIMETHOPRIM [Suspect]
     Active Substance: SULFAMETHOXAZOLE\TRIMETHOPRIM
     Indication: Exposure during pregnancy
     Route: 064
  64. SULFASALAZINE [Suspect]
     Active Substance: SULFASALAZINE
     Indication: Exposure during pregnancy
     Route: 064
  65. TOCILIZUMAB [Suspect]
     Active Substance: TOCILIZUMAB
     Indication: Exposure during pregnancy
     Route: 064
  66. TOFACITINIB CITRATE [Concomitant]
     Active Substance: TOFACITINIB CITRATE
     Indication: Exposure during pregnancy
     Route: 064
  67. TRAMADOL HYDROCHLORIDE [Suspect]
     Active Substance: TRAMADOL HYDROCHLORIDE
     Indication: Exposure during pregnancy
     Route: 064
  68. VITAMIN D3 [Suspect]
     Active Substance: CHOLECALCIFEROL
     Indication: Exposure during pregnancy
     Route: 064
  69. PREDNISONE [Suspect]
     Active Substance: PREDNISONE
     Indication: Exposure during pregnancy
     Route: 064
  70. XELJANZ [Suspect]
     Active Substance: TOFACITINIB CITRATE
     Indication: Exposure during pregnancy
     Route: 064

REACTIONS (3)
  - Death neonatal [Fatal]
  - Congenital anomaly [Fatal]
  - Foetal exposure during pregnancy [Fatal]
